FAERS Safety Report 15549382 (Version 2)
Quarter: 2018Q4

REPORT INFORMATION
  Report Type: Spontaneous
  Country: US (occurrence: US)
  Receive Date: 20181025
  Receipt Date: 20181114
  Transmission Date: 20190205
  Serious: No
  Sender: FDA-Public Use
  Company Number: US-PFIZER INC-2018037302

PATIENT
  Age: 63 Year
  Sex: Female
  Weight: 63.49 kg

DRUGS (1)
  1. LYRICA [Suspect]
     Active Substance: PREGABALIN
     Indication: FIBROMYALGIA
     Dosage: 75 MG, 2X/DAY
     Route: 048

REACTIONS (10)
  - Burning sensation [Unknown]
  - Arthralgia [Unknown]
  - Bone pain [Unknown]
  - Fall [Unknown]
  - Tendonitis [Unknown]
  - Paraesthesia [Unknown]
  - Malaise [Unknown]
  - Muscle spasms [Unknown]
  - Nausea [Unknown]
  - Musculoskeletal disorder [Not Recovered/Not Resolved]
